FAERS Safety Report 6093243-5 (Version None)
Quarter: 2009Q1

REPORT INFORMATION
  Report Type: 
  Country: None (occurrence: None)
  Receive Date: 20090224
  Receipt Date: 20090224
  Transmission Date: 20090719
  Serious: No
  Sender: FDA-Public Use
  Company Number: None

PATIENT
  Sex: Male
  Weight: 83.18 kg

DRUGS (3)
  1. AMBIEN [Suspect]
     Dosage: 5MG TABLET 5 MG QHS ORAL
     Route: 048
     Dates: start: 20090210, end: 20090223
  2. FLUOXETINE HCL [Concomitant]
  3. PATANOL (OLOPATADINE 0.1%) [Concomitant]

REACTIONS (1)
  - ANXIETY [None]
